FAERS Safety Report 18381653 (Version 7)
Quarter: 2021Q3

REPORT INFORMATION
  Report Type: Report from Study
  Country: CA (occurrence: CA)
  Receive Date: 20201014
  Receipt Date: 20210906
  Transmission Date: 20211014
  Serious: Yes (Hospitalization, Disabling, Other)
  Sender: FDA-Public Use
  Company Number: CA-JNJFOC-20201010079

PATIENT
  Age: 57 Year
  Sex: Male

DRUGS (2)
  1. REMICADE [Suspect]
     Active Substance: INFLIXIMAB
     Indication: CROHN^S DISEASE
     Route: 042
     Dates: start: 20081001, end: 202104
  2. REMICADE [Suspect]
     Active Substance: INFLIXIMAB
     Dosage: PATIENT RETURNED FOR REMICADE INFUSION ON 31?AUG?2021 AFTER BEING OFF REMICADE SINCE APRIL.
     Route: 042
     Dates: start: 20210831

REACTIONS (3)
  - Lip and/or oral cavity cancer [Unknown]
  - Hypertension [Not Recovered/Not Resolved]
  - Tongue cancer recurrent [Not Recovered/Not Resolved]

NARRATIVE: CASE EVENT DATE: 20201006
